FAERS Safety Report 8202801-0 (Version None)
Quarter: 2012Q1

REPORT INFORMATION
  Report Type: 
  Country: None (occurrence: None)
  Receive Date: 20120312
  Receipt Date: 20120312
  Transmission Date: 20120608
  Serious: Yes (Other)
  Sender: FDA-Public Use
  Company Number: None

PATIENT
  Age: 36 Year
  Sex: Female
  Weight: 58.967 kg

DRUGS (1)
  1. TRIVORA-28 [Suspect]
     Indication: CONTRACEPTION
     Dosage: 1 PILL
     Dates: start: 20120123, end: 20120221

REACTIONS (6)
  - PRODUCT QUALITY ISSUE [None]
  - POLYMENORRHOEA [None]
  - BREAST TENDERNESS [None]
  - HYPOMENORRHOEA [None]
  - MIGRAINE [None]
  - METRORRHAGIA [None]
